FAERS Safety Report 8622393 (Version 3)
Quarter: 2015Q2

REPORT INFORMATION
  Report Type: Spontaneous
  Country: US (occurrence: US)
  Receive Date: 20120619
  Receipt Date: 20150630
  Transmission Date: 20150821
  Serious: Yes (Hospitalization, Other)
  Sender: FDA-Public Use
  Company Number: US-ROCHE-751344

PATIENT
  Sex: Female
  Weight: 92.62 kg

DRUGS (3)
  1. ACCUTANE [Suspect]
     Active Substance: ISOTRETINOIN
     Route: 048
  2. SYNTHROID [Concomitant]
     Active Substance: LEVOTHYROXINE SODIUM
  3. ACCUTANE [Suspect]
     Active Substance: ISOTRETINOIN
     Indication: ACNE
     Route: 048
     Dates: start: 1997, end: 1998

REACTIONS (13)
  - Depression [Unknown]
  - Arthralgia [Unknown]
  - Renal cancer [Unknown]
  - Colitis ulcerative [Unknown]
  - Pain in extremity [Unknown]
  - Bipolar I disorder [Unknown]
  - Hot flush [Unknown]
  - Mental disorder [Unknown]
  - Inflammatory bowel disease [Unknown]
  - Suicide attempt [Unknown]
  - Irritable bowel syndrome [Unknown]
  - Cholelithiasis [Unknown]
  - Pain [Unknown]

NARRATIVE: CASE EVENT DATE: 2002
